FAERS Safety Report 21232188 (Version 1)
Quarter: 2022Q3

REPORT INFORMATION
  Report Type: Report from Study
  Country: US (occurrence: US)
  Receive Date: 20220819
  Receipt Date: 20220819
  Transmission Date: 20221027
  Serious: Yes (Other)
  Sender: FDA-Public Use
  Company Number: US-GILEAD-2022-0589304

PATIENT
  Age: 76 Year
  Sex: Female

DRUGS (29)
  1. AZTREONAM LYSINE [Suspect]
     Active Substance: AZTREONAM LYSINE
     Indication: Cystic fibrosis lung
     Dosage: UNK, TID
     Route: 065
  2. TRIKAFTA [Concomitant]
     Active Substance: ELEXACAFTOR\IVACAFTOR\TEZACAFTOR
  3. ELIQUIS [Concomitant]
     Active Substance: APIXABAN
  4. GOTU KOLA EXTRACT [Concomitant]
  5. PROAIR HFA [Concomitant]
     Active Substance: ALBUTEROL SULFATE
  6. TEMAZEPAM [Concomitant]
     Active Substance: TEMAZEPAM
  7. TOBRAMYCIN [Concomitant]
     Active Substance: TOBRAMYCIN
  8. VITAMIN B12 [Concomitant]
     Active Substance: CYANOCOBALAMIN
  9. AZITHROMYCIN [Concomitant]
     Active Substance: AZITHROMYCIN
  10. PULMOZYME [Concomitant]
     Active Substance: DORNASE ALFA
  11. XOPENEX [Concomitant]
     Active Substance: LEVALBUTEROL HYDROCHLORIDE
  12. CALCIUM\CHOLECALCIFEROL [Concomitant]
     Active Substance: CALCIUM\CHOLECALCIFEROL
  13. LATANOPROST [Concomitant]
     Active Substance: LATANOPROST
  14. CULTURELLE [Concomitant]
     Active Substance: LACTOBACILLUS RHAMNOSUS
  15. COLISTIMETHATE SODIUM [Concomitant]
     Active Substance: COLISTIMETHATE SODIUM
  16. VITAMIN C [Concomitant]
     Active Substance: ASCORBIC ACID
  17. VITAMIN D NOS [Concomitant]
     Active Substance: VITAMIN D NOS
  18. NUZYRA [Concomitant]
     Active Substance: OMADACYCLINE
  19. FLUCONAZOLE [Concomitant]
     Active Substance: FLUCONAZOLE
  20. LEVALBUTEROL [Concomitant]
     Active Substance: LEVALBUTEROL
  21. CHONDROITIN SULFATE (BOVINE)\GLUCOSAMINE SULFATE [Concomitant]
     Active Substance: CHONDROITIN SULFATE (BOVINE)\GLUCOSAMINE SULFATE
  22. MINERALS\VITAMINS [Concomitant]
     Active Substance: MINERALS\VITAMINS
  23. VITAMIN B [Concomitant]
     Active Substance: VITAMIN B
  24. CALCIUM [Concomitant]
     Active Substance: CALCIUM
  25. VITAMINS [Concomitant]
     Active Substance: VITAMINS
  26. AQUADEKS [ASCORBIC ACID;BETACAROTENE;BIOTIN;CALCIUM PANTOTHENATE;COLEC [Concomitant]
  27. RESTORIL [Concomitant]
     Active Substance: TEMAZEPAM
  28. TOBI [Concomitant]
     Active Substance: TOBRAMYCIN
  29. SODIUM CHLORIDE [Concomitant]
     Active Substance: SODIUM CHLORIDE

REACTIONS (2)
  - COVID-19 pneumonia [Recovering/Resolving]
  - Fungal infection [Unknown]

NARRATIVE: CASE EVENT DATE: 20220704
